FAERS Safety Report 21775072 (Version 3)
Quarter: 2023Q1

REPORT INFORMATION
  Report Type: Spontaneous
  Country: US (occurrence: US)
  Receive Date: 20221225
  Receipt Date: 20230202
  Transmission Date: 20230418
  Serious: Yes (Hospitalization, Other)
  Sender: FDA-Public Use
  Company Number: US-JNJFOC-20221227373

PATIENT
  Age: 35 Year
  Sex: Male

DRUGS (3)
  1. SPRAVATO [Suspect]
     Active Substance: ESKETAMINE
     Indication: Depression
     Dosage: ^56 MG, 1 DOSE^
     Dates: start: 20211122, end: 20211122
  2. SPRAVATO [Suspect]
     Active Substance: ESKETAMINE
     Dosage: ^84 MG, 56 DOSES^
     Dates: start: 20211124, end: 20221212
  3. KETAMINE [Concomitant]
     Active Substance: KETAMINE
     Indication: Product used for unknown indication
     Route: 042

REACTIONS (7)
  - Bladder disorder [Unknown]
  - Suicidal ideation [Unknown]
  - Euphoric mood [Unknown]
  - Dysarthria [Unknown]
  - Off label use [Unknown]
  - Drug diversion [Unknown]
  - Intentional product misuse [Unknown]
